FAERS Safety Report 9793333 (Version 2)
Quarter: 2014Q1

REPORT INFORMATION
  Report Type: Report from Study
  Country: US (occurrence: US)
  Receive Date: 20140102
  Receipt Date: 20140122
  Transmission Date: 20141002
  Serious: Yes (Other)
  Sender: FDA-Public Use
  Company Number: US-PURDUE-USA-2013-0109878

PATIENT
  Age: 46 Year
  Sex: Female

DRUGS (2)
  1. BTDS PATCH [Suspect]
     Indication: FIBROMYALGIA
     Dosage: UNK
     Route: 062
     Dates: start: 201308
  2. BTDS PATCH [Suspect]
     Dosage: 20 MCG/HR, WEEKLY
     Route: 062
     Dates: start: 20131129

REACTIONS (4)
  - Fall [Recovered/Resolved]
  - Loss of consciousness [Unknown]
  - Pain [Recovered/Resolved]
  - Tremor [Unknown]
